FAERS Safety Report 20985905 (Version 1)
Quarter: 2022Q2

REPORT INFORMATION
  Report Type: Spontaneous
  Country: US (occurrence: None)
  Receive Date: 20220618
  Receipt Date: 20220618
  Transmission Date: 20220721
  Serious: Yes (Other)
  Sender: FDA-Public Use
  Company Number: None

PATIENT
  Age: 39 Year
  Sex: Female
  Weight: 45.45 kg

DRUGS (1)
  1. BEBTELOVIMAB [Suspect]
     Active Substance: BEBTELOVIMAB
     Indication: COVID-19
     Dosage: OTHER FREQUENCY : ONCE;?
     Route: 042
     Dates: start: 20220602, end: 20220602

REACTIONS (7)
  - Headache [None]
  - Dizziness [None]
  - Asthenia [None]
  - Feeling abnormal [None]
  - Dysgeusia [None]
  - Visual impairment [None]
  - Infusion related reaction [None]

NARRATIVE: CASE EVENT DATE: 20220602
